FAERS Safety Report 11358735 (Version 1)
Quarter: 2015Q3

REPORT INFORMATION
  Report Type: Report from Study
  Country: US (occurrence: None)
  Receive Date: 20150716
  Receipt Date: 20150716
  Transmission Date: 20151125
  Serious: Yes (Death, Hospitalization)
  Sender: FDA-Public Use
  Company Number: 2015PROUSA04364

PATIENT
  Age: 72 Year
  Sex: Male
  Weight: 88 kg

DRUGS (17)
  1. PROVENGE [Suspect]
     Active Substance: SIPULEUCEL-T
     Indication: PROSTATE CANCER METASTATIC
     Dosage: 250 ML, SINGLE, INTRAVENOUS
     Route: 042
     Dates: start: 20120514, end: 20120514
  2. MAG-OX (MAGNESIUM OXIDE) [Concomitant]
  3. ATORVASTATIN (ATORVASTATIN CALCIUM) [Concomitant]
  4. INSULIN ASPART [Concomitant]
     Active Substance: INSULIN ASPART
  5. NORCO (HYDROCODONE BITARTRATE, PARACETAMOL) [Concomitant]
  6. TIZANIDINE. [Concomitant]
     Active Substance: TIZANIDINE
  7. ACETAMINOPHEN. [Concomitant]
     Active Substance: ACETAMINOPHEN
  8. MIRALAX( MACROGOL) [Concomitant]
  9. COUMADIN [Concomitant]
     Active Substance: WARFARIN SODIUM
  10. ASPIRIN (ACETYLSALICYLIC ACID) [Concomitant]
     Active Substance: ASPIRIN
  11. DULCOLAX (MACROGOL 3350) [Concomitant]
  12. INSULIN DETEMIR [Concomitant]
     Active Substance: INSULIN DETEMIR
  13. BENADRYL [Concomitant]
     Active Substance: DIPHENHYDRAMINE HYDROCHLORIDE
  14. PANTOPRAZOLE [Concomitant]
     Active Substance: PANTOPRAZOLE SODIUM
  15. XANAX [Concomitant]
     Active Substance: ALPRAZOLAM
  16. COLACE [Concomitant]
     Active Substance: DOCUSATE SODIUM
  17. FLUTICASONE (FULTICASONE PROPIONATE) [Concomitant]

REACTIONS (1)
  - Cerebrovascular accident [None]

NARRATIVE: CASE EVENT DATE: 20141007
